FAERS Safety Report 25703661 (Version 1)
Quarter: 2025Q3

REPORT INFORMATION
  Report Type: Spontaneous
  Country: CN (occurrence: CN)
  Receive Date: 20250820
  Receipt Date: 20250820
  Transmission Date: 20251021
  Serious: Yes (Hospitalization, Other)
  Sender: SANOFI AVENTIS
  Company Number: CN-SA-2025SA239403

PATIENT
  Age: 55 Year
  Sex: Male

DRUGS (4)
  1. DUPILUMAB [Suspect]
     Active Substance: DUPILUMAB
     Indication: Pemphigoid
     Route: 058
  2. DUPILUMAB [Suspect]
     Active Substance: DUPILUMAB
     Dosage: 300 MG, QOW
     Route: 058
  3. METHYLPREDNISOLONE [Suspect]
     Active Substance: METHYLPREDNISOLONE
     Indication: Pemphigoid
     Dosage: 40 MG, QD
     Route: 048
  4. CYCLOSPORINE [Suspect]
     Active Substance: CYCLOSPORINE
     Indication: Pemphigoid
     Dosage: 75 MG, TID
     Route: 048

REACTIONS (29)
  - Nocardiosis [Recovering/Resolving]
  - Pyrexia [Recovering/Resolving]
  - Discomfort [Recovering/Resolving]
  - Off label use [Recovering/Resolving]
  - Sepsis [Recovering/Resolving]
  - Endophthalmitis [Recovering/Resolving]
  - Visual impairment [Recovering/Resolving]
  - Eye swelling [Recovering/Resolving]
  - Vision blurred [Recovering/Resolving]
  - Eye pain [Recovering/Resolving]
  - Conjunctival hyperaemia [Recovering/Resolving]
  - Swelling of eyelid [Recovering/Resolving]
  - Conjunctival oedema [Recovering/Resolving]
  - Corneal opacity [Recovering/Resolving]
  - Iris adhesions [Recovering/Resolving]
  - Vitreous opacities [Recovering/Resolving]
  - Eye inflammation [Recovering/Resolving]
  - Retinal detachment [Recovering/Resolving]
  - Uveitis [Recovering/Resolving]
  - Necrotising retinitis [Recovering/Resolving]
  - Pneumonia [Recovering/Resolving]
  - Dyspnoea [Recovering/Resolving]
  - Cough [Recovering/Resolving]
  - Productive cough [Recovering/Resolving]
  - Pneumonitis [Recovering/Resolving]
  - Pericardial effusion [Recovering/Resolving]
  - Pulmonary mass [Recovering/Resolving]
  - Hypoproteinaemia [Recovering/Resolving]
  - Respiratory failure [Recovering/Resolving]
